FAERS Safety Report 4606978-5 (Version None)
Quarter: 2005Q1

REPORT INFORMATION
  Report Type: 
  Country: None (occurrence: None)
  Receive Date: 20050309
  Receipt Date: 20050224
  Transmission Date: 20050727
  Serious: Yes (Life-Threatening, Hospitalization, Other)
  Sender: FDA-Public Use
  Company Number: 2004095675

PATIENT
  Age: 71 Year
  Sex: Male
  Weight: 83.9154 kg

DRUGS (3)
  1. SILDENAFIL CITRATE [Suspect]
     Indication: ERECTILE DYSFUNCTION
     Dosage: SEE IMAGE
     Route: 048
     Dates: start: 20040928, end: 20041011
  2. SILDENAFIL CITRATE [Suspect]
     Indication: ERECTILE DYSFUNCTION
     Dosage: SEE IMAGE
     Route: 048
     Dates: start: 20041012, end: 20041026
  3. LEVOTHYROXINE SODIUM [Concomitant]

REACTIONS (10)
  - CEREBRAL ATROPHY [None]
  - CEREBROVASCULAR ACCIDENT [None]
  - DEAFNESS [None]
  - DROOLING [None]
  - HAEMATURIA [None]
  - HYPERTENSION [None]
  - INFARCTION [None]
  - INGUINAL HERNIA REPAIR [None]
  - THROMBOSIS [None]
  - VASCULAR CALCIFICATION [None]
